FAERS Safety Report 24945233 (Version 2)
Quarter: 2025Q1

REPORT INFORMATION
  Report Type: Spontaneous
  Country: DE (occurrence: DE)
  Receive Date: 20250208
  Receipt Date: 20250221
  Transmission Date: 20250408
  Serious: Yes (Other)
  Sender: ROCHE
  Company Number: DE-ROCHE-10000093710

PATIENT
  Age: 26 Year
  Sex: Female

DRUGS (1)
  1. OCREVUS [Suspect]
     Active Substance: OCRELIZUMAB
     Indication: Relapsing-remitting multiple sclerosis
     Route: 040
     Dates: start: 202305

REACTIONS (1)
  - Aquagenic wrinkling of palms [Not Recovered/Not Resolved]

NARRATIVE: CASE EVENT DATE: 20240801
